FAERS Safety Report 21120995 (Version 1)
Quarter: 2022Q3

REPORT INFORMATION
  Report Type: Spontaneous
  Country: ES (occurrence: ES)
  Receive Date: 20220722
  Receipt Date: 20220722
  Transmission Date: 20221027
  Serious: Yes (Other)
  Sender: FDA-Public Use
  Company Number: ES-AMGEN-ESPSP2022111917

PATIENT
  Age: 76 Year
  Sex: Male

DRUGS (5)
  1. DEXAMETHASONE [Suspect]
     Active Substance: DEXAMETHASONE
     Indication: Plasma cell myeloma
     Route: 065
  2. LENALIDOMIDE [Suspect]
     Active Substance: LENALIDOMIDE
     Indication: Plasma cell myeloma
     Route: 065
  3. DARBEPOETIN ALFA [Suspect]
     Active Substance: DARBEPOETIN ALFA
     Indication: Prophylaxis
     Route: 065
  4. KYPROLIS [Suspect]
     Active Substance: CARFILZOMIB
     Indication: Plasma cell myeloma
     Dosage: DOSAGE1: UNIT=NOT AVAILABLE
     Route: 065
  5. FILGRASTIM [Suspect]
     Active Substance: FILGRASTIM
     Indication: Prophylaxis
     Route: 065

REACTIONS (14)
  - Thrombocytopenia [Unknown]
  - Diarrhoea [Unknown]
  - COVID-19 [Unknown]
  - Hip fracture [Unknown]
  - Neutropenia [Unknown]
  - Tricuspid valve incompetence [Unknown]
  - Rash [Unknown]
  - Pelvic fracture [Unknown]
  - Pneumonia [Unknown]
  - Nasopharyngitis [Unknown]
  - Fall [Unknown]
  - Anaemia [Unknown]
  - Renal impairment [Unknown]
  - Respiratory tract infection [Unknown]
